FAERS Safety Report 6413672-7 (Version None)
Quarter: 2009Q4

REPORT INFORMATION
  Report Type: 
  Country: None (occurrence: None)
  Receive Date: 20091023
  Receipt Date: 20091023
  Transmission Date: 20100525
  Serious: Yes (Other)
  Sender: FDA-Public Use
  Company Number: None

PATIENT
  Age: 19 Year
  Sex: Male
  Weight: 123.832 kg

DRUGS (1)
  1. SEROQUEL XR [Suspect]
     Indication: BIPOLAR DISORDER
     Dosage: 300MG 2X DAILY PO
     Route: 048
     Dates: start: 20090601

REACTIONS (5)
  - DIABETES MELLITUS [None]
  - ECONOMIC PROBLEM [None]
  - SWELLING [None]
  - THYROID DISORDER [None]
  - WEIGHT INCREASED [None]
